FAERS Safety Report 24372204 (Version 2)
Quarter: 2024Q4

REPORT INFORMATION
  Report Type: Report from Study
  Country: US (occurrence: US)
  Receive Date: 20240927
  Receipt Date: 20241007
  Transmission Date: 20250115
  Serious: Yes (Hospitalization, Other)
  Sender: VERTEX
  Company Number: US-VERTEX PHARMACEUTICALS-2024-015112

PATIENT
  Sex: Male
  Weight: 20 kg

DRUGS (2)
  1. TRIKAFTA [Suspect]
     Active Substance: ELEXACAFTOR\IVACAFTOR\TEZACAFTOR
     Indication: Cystic fibrosis
     Dosage: 1 ORANGE PACKET IN THE MORNING AND 1 PINK PACKET IN THE EVENING
     Route: 048
     Dates: start: 20240228
  2. PULMOZYME [Concomitant]
     Active Substance: DORNASE ALFA
     Dosage: UNK

REACTIONS (4)
  - Hepatic failure [Recovering/Resolving]
  - Pseudomonas infection [Unknown]
  - Infection [Unknown]
  - Oxygen saturation decreased [Recovering/Resolving]
